FAERS Safety Report 20082798 (Version 1)
Quarter: 2021Q4

REPORT INFORMATION
  Report Type: Spontaneous
  Country: US (occurrence: None)
  Receive Date: 20211117
  Receipt Date: 20211117
  Transmission Date: 20220303
  Serious: Yes (Hospitalization)
  Sender: FDA-Public Use
  Company Number: None

PATIENT
  Age: 67 Year
  Sex: Female
  Weight: 66.5 kg

DRUGS (18)
  1. CASIRIVIMAB\IMDEVIMAB [Suspect]
     Active Substance: CASIRIVIMAB\IMDEVIMAB
     Indication: COVID-19
     Route: 042
     Dates: start: 20211112, end: 20211112
  2. ALBUTEROL [Concomitant]
     Active Substance: ALBUTEROL
  3. ASCORBIC ACID [Concomitant]
     Active Substance: ASCORBIC ACID
  4. ASPIRIN [Concomitant]
     Active Substance: ASPIRIN
  5. BUPROPION [Concomitant]
     Active Substance: BUPROPION
  6. DEXAMETHASONE [Concomitant]
     Active Substance: DEXAMETHASONE
  7. DOXYCYCLINE [Concomitant]
     Active Substance: DOXYCYCLINE
  8. ESOMEPRAZOLE [Concomitant]
     Active Substance: ESOMEPRAZOLE
  9. FLUOXETINE [Concomitant]
     Active Substance: FLUOXETINE HYDROCHLORIDE
  10. fluticasone-salmeterol [Concomitant]
  11. GABAPENTIN [Concomitant]
     Active Substance: GABAPENTIN
  12. GUAIFENESIN [Concomitant]
     Active Substance: GUAIFENESIN
  13. lisdeamfetamine [Concomitant]
  14. RITUXIMAB [Concomitant]
     Active Substance: RITUXIMAB
  15. ROSUVASTATIN [Concomitant]
     Active Substance: ROSUVASTATIN
  16. TIZANIDINE [Concomitant]
     Active Substance: TIZANIDINE
  17. TRAZODONE [Concomitant]
     Active Substance: TRAZODONE HYDROCHLORIDE
  18. ZOLEDRONIC ACID [Concomitant]
     Active Substance: ZOLEDRONIC ACID

REACTIONS (4)
  - COVID-19 pneumonia [None]
  - Hypoxia [None]
  - Pneumonia [None]
  - Aspiration [None]

NARRATIVE: CASE EVENT DATE: 20211113
